FAERS Safety Report 7200094-4 (Version None)
Quarter: 2010Q4

REPORT INFORMATION
  Report Type: 
  Country: None (occurrence: None)
  Receive Date: 20101228
  Receipt Date: 20101222
  Transmission Date: 20110411
  Serious: No
  Sender: FDA-Public Use
  Company Number: US-JNJFOC-20100905403

PATIENT
  Sex: Female
  Weight: 95.26 kg

DRUGS (7)
  1. UNSPECIFIED FENTANYL [Suspect]
     Indication: ILL-DEFINED DISORDER
     Route: 062
  2. FENTANYL-100 [Suspect]
     Indication: PRODUCT USED FOR UNKNOWN INDICATION
     Route: 062
  3. DURAGESIC-50 [Suspect]
     Indication: PAIN
     Route: 062
  4. AVAPRO [Concomitant]
     Indication: CARDIAC FAILURE CONGESTIVE
     Route: 048
  5. TOPROL-XL [Concomitant]
     Indication: CARDIAC FAILURE CONGESTIVE
     Route: 065
  6. LASIX [Concomitant]
     Indication: CARDIAC FAILURE CONGESTIVE
     Route: 065
  7. XANAX [Concomitant]
     Indication: ILL-DEFINED DISORDER
     Route: 065

REACTIONS (1)
  - WRONG TECHNIQUE IN DRUG USAGE PROCESS [None]
